FAERS Safety Report 4296450-7 (Version None)
Quarter: 2004Q1

REPORT INFORMATION
  Report Type: 
  Country: None (occurrence: None)
  Receive Date: 20040122
  Receipt Date: 20031024
  Transmission Date: 20041129
  Serious: Yes (Other)
  Sender: FDA-Public Use
  Company Number: 2003031771

PATIENT
  Age: 39 Year
  Sex: Male
  Weight: 72.5755 kg

DRUGS (2)
  1. RELPAX [Suspect]
     Indication: CLUSTER HEADACHE
     Dosage: 120 MG (TID), ORAL
     Route: 048
     Dates: start: 20030717
  2. FROVATRIPTAN (FROVATRIPTAN) [Suspect]
     Indication: CLUSTER HEADACHE
     Dates: start: 20030723

REACTIONS (4)
  - ADVERSE EVENT [None]
  - DRUG EFFECT DECREASED [None]
  - INTENTIONAL OVERDOSE [None]
  - NAUSEA [None]
